FAERS Safety Report 13942423 (Version 1)
Quarter: 2017Q3

REPORT INFORMATION
  Report Type: Spontaneous
  Country: US (occurrence: US)
  Receive Date: 20170907
  Receipt Date: 20170907
  Transmission Date: 20171127
  Serious: Yes (Other)
  Sender: FDA-Public Use
  Company Number: None

PATIENT
  Age: 70 Year
  Sex: Male
  Weight: 74.25 kg

DRUGS (5)
  1. NATURE MULTI VITAMIN MEN [Concomitant]
  2. OMEPRAZOLE CAP 20MG [Suspect]
     Active Substance: OMEPRAZOLE
     Indication: PROPHYLAXIS
     Dosage: ?          QUANTITY:1 CAPSULE(S);?
     Route: 048
     Dates: start: 20170824, end: 20170907
  3. MELOXICAM TAB 15MG [Suspect]
     Active Substance: MELOXICAM
     Indication: ARTHRITIS
     Dosage: ?          QUANTITY:1 TABLET(S);?
     Route: 048
     Dates: start: 20170824, end: 20170907
  4. OMEPRAZOLE CAP 20MG [Suspect]
     Active Substance: OMEPRAZOLE
     Indication: ULCER
     Dosage: ?          QUANTITY:1 CAPSULE(S);?
     Route: 048
     Dates: start: 20170824, end: 20170907
  5. TAMSULOSIN [Concomitant]
     Active Substance: TAMSULOSIN

REACTIONS (7)
  - Nasal congestion [None]
  - Chills [None]
  - Asthenia [None]
  - Dyspnoea [None]
  - Tremor [None]
  - Product quality issue [None]
  - Feeling abnormal [None]

NARRATIVE: CASE EVENT DATE: 20170907
